FAERS Safety Report 8619284-9 (Version None)
Quarter: 2012Q3

REPORT INFORMATION
  Report Type: 
  Country: None (occurrence: None)
  Receive Date: 20120824
  Receipt Date: 20120816
  Transmission Date: 20120928
  Serious: Yes (Other)
  Sender: FDA-Public Use
  Company Number: US-ASTELLAS-2012US007127

PATIENT
  Sex: Male

DRUGS (2)
  1. PROGRAF [Suspect]
     Indication: RENAL TRANSPLANT
     Dosage: 10 MG, UID/QD
     Route: 048
  2. PROGRAF [Suspect]
     Indication: HEART TRANSPLANT

REACTIONS (2)
  - HEART TRANSPLANT [None]
  - RENAL TRANSPLANT [None]
